FAERS Safety Report 22239462 (Version 2)
Quarter: 2023Q2

REPORT INFORMATION
  Report Type: Spontaneous
  Country: US (occurrence: US)
  Receive Date: 20230421
  Receipt Date: 20230519
  Transmission Date: 20230722
  Serious: No
  Sender: FDA-Public Use
  Company Number: US-GSK-US2023AMR056742

PATIENT
  Sex: Female
  Weight: 119.4 kg

DRUGS (1)
  1. NUCALA [Suspect]
     Active Substance: MEPOLIZUMAB
     Indication: Product used for unknown indication
     Dosage: 100 MG, MO
     Dates: start: 20220421, end: 20230323

REACTIONS (2)
  - Back pain [Unknown]
  - Arthralgia [Unknown]
